FAERS Safety Report 8143394-6 (Version None)
Quarter: 2012Q1

REPORT INFORMATION
  Report Type: 
  Country: None (occurrence: None)
  Receive Date: 20120217
  Receipt Date: 20120214
  Transmission Date: 20120608
  Serious: Yes (Life-Threatening, Hospitalization, Other)
  Sender: FDA-Public Use
  Company Number: US-BAYER-2011-068263

PATIENT
  Age: 18 Year
  Sex: Female
  Weight: 135.15 kg

DRUGS (5)
  1. DROSPIRENONE AND ETHINYL ESTRADIOL [Suspect]
  2. SINGULAIR [Concomitant]
     Dosage: 10 MG, DAILY
     Route: 048
  3. YASMIN [Suspect]
  4. YAZ [Suspect]
  5. ZOLOFT [Concomitant]
     Indication: DEPRESSION
     Dosage: 50 MG, DAILY
     Route: 048

REACTIONS (10)
  - THROMBOSIS [None]
  - DEEP VEIN THROMBOSIS [None]
  - INJURY [None]
  - INTERNAL INJURY [None]
  - PAIN [None]
  - ANXIETY [None]
  - GALLBLADDER NON-FUNCTIONING [None]
  - CHOLECYSTITIS ACUTE [None]
  - ANHEDONIA [None]
  - EMOTIONAL DISTRESS [None]
